FAERS Safety Report 7922496 (Version 12)
Quarter: 2015Q3

REPORT INFORMATION
  Report Type: Spontaneous
  Country: US (occurrence: US)
  Receive Date: 20110429
  Receipt Date: 20150701
  Transmission Date: 20151125
  Serious: Yes (Other)
  Sender: FDA-Public Use
  Company Number: US-ASTRAZENECA-2011SE02728

PATIENT
  Age: 57 Year
  Sex: Female

DRUGS (6)
  1. NEXIUM [Suspect]
     Active Substance: ESOMEPRAZOLE MAGNESIUM
     Indication: GASTRIC DISORDER
     Route: 048
  2. PROUGAL [Concomitant]
  3. ULTRAM ER [Concomitant]
     Active Substance: TRAMADOL HYDROCHLORIDE
  4. CONCORTA [Concomitant]
  5. NEXIUM [Suspect]
     Active Substance: ESOMEPRAZOLE MAGNESIUM
     Indication: GASTROOESOPHAGEAL REFLUX DISEASE
     Route: 048
  6. CYMBALTA [Concomitant]
     Active Substance: DULOXETINE HYDROCHLORIDE

REACTIONS (18)
  - Laryngitis [Unknown]
  - Dyspepsia [Not Recovered/Not Resolved]
  - Pain [Unknown]
  - Attention deficit/hyperactivity disorder [Unknown]
  - Drug ineffective [Unknown]
  - Deafness [Not Recovered/Not Resolved]
  - Burning sensation [Unknown]
  - Myocardial infarction [Unknown]
  - Psychiatric symptom [Unknown]
  - Nausea [Unknown]
  - Intentional product misuse [Unknown]
  - Asthma [Unknown]
  - Malaise [Unknown]
  - Gastrooesophageal reflux disease [Unknown]
  - Regurgitation [Unknown]
  - Nasopharyngitis [Unknown]
  - Diverticulitis [Unknown]
  - Drug dose omission [Unknown]
